FAERS Safety Report 8607212-1 (Version None)
Quarter: 2012Q3

REPORT INFORMATION
  Report Type: 
  Country: None (occurrence: None)
  Receive Date: 20120821
  Receipt Date: 20120813
  Transmission Date: 20120928
  Serious: No
  Sender: FDA-Public Use
  Company Number: US-BIOGENIDEC-2012BI032053

PATIENT
  Age: 40 Year
  Sex: Female

DRUGS (2)
  1. SOIMA [Concomitant]
     Indication: INFLAMMATION
  2. TYSABRI [Suspect]
     Indication: MULTIPLE SCLEROSIS
     Route: 042
     Dates: start: 20120802

REACTIONS (12)
  - LYMPHADENOPATHY [None]
  - SYNCOPE [None]
  - MIGRAINE [None]
  - INCOHERENT [None]
  - NECK PAIN [None]
  - HEADACHE [None]
  - DISORIENTATION [None]
  - DECREASED APPETITE [None]
  - HEART RATE DECREASED [None]
  - BLOOD PRESSURE DECREASED [None]
  - INFLUENZA LIKE ILLNESS [None]
  - FATIGUE [None]
